FAERS Safety Report 5809848-X (Version None)
Quarter: 2008Q3

REPORT INFORMATION
  Report Type: 
  Country: None (occurrence: None)
  Receive Date: 20080715
  Receipt Date: 20080711
  Transmission Date: 20090109
  Serious: Yes (Life-Threatening)
  Sender: FDA-Public Use
  Company Number: JP-ASTRAZENECA-2008AP05347

PATIENT
  Age: 55 Year
  Sex: Male

DRUGS (2)
  1. DIPRIVAN [Suspect]
     Indication: SEDATION
     Dosage: DOSE UNKNOWN
     Route: 042
     Dates: start: 20080618, end: 20080619
  2. LIVALO [Concomitant]
     Dosage: DOSE UNKNOWN
     Route: 048

REACTIONS (1)
  - HYPERTHERMIA MALIGNANT [None]
